FAERS Safety Report 4490494-8 (Version None)
Quarter: 2004Q4

REPORT INFORMATION
  Report Type: 
  Country: None (occurrence: None)
  Receive Date: 20041028
  Receipt Date: 20041014
  Transmission Date: 20050328
  Serious: Yes (Other)
  Sender: FDA-Public Use
  Company Number: 2002-BP-03123BP

PATIENT
  Age: 6 Month
  Sex: Male

DRUGS (1)
  1. VIRAMUNE [Suspect]
     Indication: PROPHYLAXIS AGAINST HIV INFECTION
     Dosage: 0.72 ML , PO
     Route: 048
     Dates: start: 20011205, end: 20011205

REACTIONS (6)
  - ALANINE AMINOTRANSFERASE INCREASED [None]
  - APGAR SCORE LOW [None]
  - DRUG EXPOSURE DURING PREGNANCY [None]
  - HAEMOGLOBIN DECREASED [None]
  - HIV TEST POSITIVE [None]
  - SEPSIS NEONATAL [None]
